FAERS Safety Report 9309513 (Version 1)
Quarter: 2013Q2

REPORT INFORMATION
  Report Type: Spontaneous
  Country: US (occurrence: US)
  Receive Date: 20130525
  Receipt Date: 20130525
  Transmission Date: 20140414
  Serious: No
  Sender: FDA-Public Use
  Company Number: US-BRISTOL-MYERS SQUIBB COMPANY-18584128

PATIENT
  Age: 63 Year
  Sex: Female

DRUGS (3)
  1. BYETTA PEN DISPOSABLE [Suspect]
     Indication: DIABETES MELLITUS
  2. BYDUREON 2MG VIAL + SYRINGE [Suspect]
     Indication: INSULIN-REQUIRING TYPE 2 DIABETES MELLITUS
     Route: 058
     Dates: start: 20130128
  3. NOVOLOG [Concomitant]
     Indication: DIABETES MELLITUS

REACTIONS (3)
  - Overdose [Unknown]
  - Injection site pain [Recovered/Resolved]
  - Off label use [Not Recovered/Not Resolved]
